FAERS Safety Report 16907635 (Version 1)
Quarter: 2019Q4

REPORT INFORMATION
  Report Type: Spontaneous
  Country: US (occurrence: US)
  Receive Date: 20191011
  Receipt Date: 20191011
  Transmission Date: 20200122
  Serious: No
  Sender: FDA-Public Use
  Company Number: US-GILEAD-2019-0432504

PATIENT
  Age: 40 Year
  Sex: Female

DRUGS (3)
  1. MIDOL [IBUPROFEN] [Concomitant]
  2. TUMS [Concomitant]
     Active Substance: CALCIUM CARBONATE
  3. SOFOSBUVIR;VELPATASVIR [Suspect]
     Active Substance: SOFOSBUVIR\VELPATASVIR
     Indication: CHRONIC HEPATITIS C
     Dosage: 1 DOSAGE FORM, QD
     Route: 048
     Dates: start: 201910

REACTIONS (3)
  - Pain [Unknown]
  - Headache [Unknown]
  - Arthralgia [Unknown]
